FAERS Safety Report 12787720 (Version 1)
Quarter: 2016Q3

REPORT INFORMATION
  Report Type: Spontaneous
  Country: US (occurrence: US)
  Receive Date: 20160928
  Receipt Date: 20160928
  Transmission Date: 20161109
  Serious: No
  Sender: FDA-Public Use
  Company Number: US-GLAXOSMITHKLINE-US2016139670

PATIENT
  Age: 67 Year
  Sex: Male

DRUGS (3)
  1. DESENEX (MICONAZOLE NITRATE) [Suspect]
     Active Substance: MICONAZOLE NITRATE
     Indication: TINEA CRURIS
     Dosage: UNK
     Dates: start: 201609
  2. VASELINE PURE [Suspect]
     Active Substance: PETROLATUM
     Indication: PRODUCT USED FOR UNKNOWN INDICATION
     Dosage: UNK
  3. LAMISIL [Suspect]
     Active Substance: TERBINAFINE HYDROCHLORIDE
     Indication: TINEA CRURIS
     Dosage: UNK

REACTIONS (3)
  - Intentional product misuse [Unknown]
  - Scrotal irritation [Not Recovered/Not Resolved]
  - Condition aggravated [Not Recovered/Not Resolved]
